FAERS Safety Report 4546271-2 (Version None)
Quarter: 2005Q1

REPORT INFORMATION
  Report Type: 
  Country: None (occurrence: None)
  Receive Date: 20050103
  Receipt Date: 20041220
  Transmission Date: 20050727
  Serious: Yes (Hospitalization)
  Sender: FDA-Public Use
  Company Number: ZONI002036

PATIENT
  Age: 54 Year
  Sex: Male

DRUGS (5)
  1. EXCEGRAN (ZONISAMIDE) [Suspect]
     Indication: EPILEPSY
     Dosage: 200 MG, 2 IN 1 D, ORAL
     Route: 048
     Dates: start: 20040914, end: 20041006
  2. DEPAKENE [Concomitant]
  3. FAMOTIDINE [Concomitant]
  4. APLACE (TROXIPIDE) [Concomitant]
  5. VALPROATE SODIUM [Concomitant]

REACTIONS (7)
  - ANOREXIA [None]
  - DIARRHOEA [None]
  - HYPERTHERMIA [None]
  - LYMPHADENOPATHY [None]
  - TENDERNESS [None]
  - THROMBOCYTOPENIA [None]
  - VOMITING [None]
